FAERS Safety Report 6745997-X (Version None)
Quarter: 2010Q2

REPORT INFORMATION
  Report Type: 
  Country: None (occurrence: None)
  Receive Date: 20100528
  Receipt Date: 20100520
  Transmission Date: 20101027
  Serious: Yes (Other)
  Sender: FDA-Public Use
  Company Number: CN-PFIZER INC-2010063127

PATIENT
  Age: 1 Year
  Sex: Female

DRUGS (2)
  1. ZITHROMAX [Suspect]
     Dosage: UNK
     Route: 048
     Dates: start: 20100517, end: 20100519
  2. CEFIXIME [Concomitant]
     Route: 048

REACTIONS (2)
  - DIARRHOEA [None]
  - MELAENA [None]
